FAERS Safety Report 10306512 (Version 3)
Quarter: 2014Q3

REPORT INFORMATION
  Report Type: Spontaneous
  Country: AT (occurrence: AT)
  Receive Date: 20140715
  Receipt Date: 20140801
  Transmission Date: 20150326
  Serious: Yes (Hospitalization)
  Sender: FDA-Public Use
  Company Number: AT-BRISTOL-MYERS SQUIBB COMPANY-21204326

PATIENT
  Age: 64 Year
  Sex: Male

DRUGS (7)
  1. ERBITUX [Suspect]
     Active Substance: CETUXIMAB
     Indication: HEAD AND NECK CANCER
     Dosage: LAST DOSE ON: 27JUN14.
     Dates: start: 20140506
  2. CONCOR [Concomitant]
     Active Substance: BISOPROLOL FUMARATE
     Indication: CORONARY ARTERY DISEASE
     Dosage: 1DF: 5 (UNIT NOS)
     Route: 048
     Dates: start: 201309
  3. LESCOL [Concomitant]
     Active Substance: FLUVASTATIN SODIUM
     Indication: HYPERCHOLESTEROLAEMIA
     Dosage: 80 (UNIT NOS)
     Route: 048
     Dates: start: 2007
  4. TRENTAL [Concomitant]
     Active Substance: PENTOXIFYLLINE
     Indication: PERIPHERAL ARTERIAL OCCLUSIVE DISEASE
  5. VITAMIN K1 [Suspect]
     Active Substance: PHYTONADIONE
     Indication: RASH
     Route: 061
  6. MINOCYCLINE HCL [Concomitant]
     Dosage: 50 (UNIT NOS)
     Route: 048
     Dates: start: 201405
  7. UREA. [Suspect]
     Active Substance: UREA
     Indication: RASH
     Route: 061

REACTIONS (3)
  - C-reactive protein increased [Not Recovered/Not Resolved]
  - Malignant neoplasm progression [Not Recovered/Not Resolved]
  - Rash [Unknown]

NARRATIVE: CASE EVENT DATE: 20140704
